FAERS Safety Report 8920880 (Version 7)
Quarter: 2015Q1

REPORT INFORMATION
  Report Type: Spontaneous
  Country: US (occurrence: US)
  Receive Date: 20121121
  Receipt Date: 20150310
  Transmission Date: 20150721
  Serious: Yes (Death, Life-Threatening, Disabling, Other)
  Sender: FDA-Public Use
  Company Number: US-009507513-1211USA007907

PATIENT
  Sex: Male
  Weight: 100.23 kg

DRUGS (3)
  1. BYETTA [Suspect]
     Active Substance: EXENATIDE
     Dosage: 10 MICROGRAM, BID
     Dates: start: 20071211, end: 20080807
  2. BYETTA [Suspect]
     Active Substance: EXENATIDE
     Indication: TYPE 2 DIABETES MELLITUS
     Dosage: 5 MICROGRAM, BID
     Dates: start: 20071119, end: 20071219
  3. JANUVIA [Suspect]
     Active Substance: SITAGLIPTIN PHOSPHATE
     Indication: TYPE 2 DIABETES MELLITUS
     Dosage: 100 MG, QD
     Route: 048
     Dates: start: 20081205, end: 20090205

REACTIONS (28)
  - Portal hypertension [Unknown]
  - Prostatomegaly [Unknown]
  - Thrombocytopenia [Recovered/Resolved]
  - Blood albumin decreased [Unknown]
  - Headache [Unknown]
  - Nausea [Unknown]
  - Intervertebral disc degeneration [Unknown]
  - Dermatitis acneiform [Unknown]
  - Insomnia [Unknown]
  - Anaemia [Recovering/Resolving]
  - Diarrhoea [Recovering/Resolving]
  - Arterial disorder [Unknown]
  - Constipation [Unknown]
  - Hypomagnesaemia [Unknown]
  - Malnutrition [Unknown]
  - Diverticulitis [Unknown]
  - Hypocalcaemia [Unknown]
  - Pruritus allergic [Unknown]
  - Pancreatic carcinoma metastatic [Fatal]
  - Radiotherapy to pancreas [Unknown]
  - Splenomegaly [Unknown]
  - Urticaria [Unknown]
  - Metastases to liver [Unknown]
  - Fatigue [Unknown]
  - Blood pressure orthostatic decreased [Unknown]
  - Arteriosclerosis coronary artery [Unknown]
  - Splenic varices [Unknown]
  - Ascites [Unknown]

NARRATIVE: CASE EVENT DATE: 20081212
